FAERS Safety Report 4821607-3 (Version None)
Quarter: 2005Q4

REPORT INFORMATION
  Report Type: 
  Country: None (occurrence: None)
  Receive Date: 20051107
  Receipt Date: 20050408
  Transmission Date: 20060501
  Serious: Yes (Hospitalization, Other)
  Sender: FDA-Public Use
  Company Number: US-MERCK-0504USA01288

PATIENT
  Sex: Female
  Weight: 89 kg

DRUGS (8)
  1. VIOXX [Suspect]
     Indication: SCIATICA
     Route: 048
     Dates: start: 20010101, end: 20030601
  2. XANAX [Concomitant]
     Indication: ANXIETY
     Route: 065
  3. PRAVACHOL [Concomitant]
     Indication: BLOOD CHOLESTEROL INCREASED
     Route: 065
  4. VERELAN [Concomitant]
     Indication: HYPERTENSION
     Route: 065
  5. MOBIC [Concomitant]
     Indication: SCIATICA
     Route: 065
  6. ZOLOFT [Concomitant]
     Route: 065
  7. CELEXA [Concomitant]
     Route: 065
  8. WELLBUTRIN [Concomitant]
     Route: 065

REACTIONS (5)
  - ANXIETY DISORDER [None]
  - CARDIAC DISORDER [None]
  - CHEST PAIN [None]
  - DYSPNOEA [None]
  - MYOCARDIAL INFARCTION [None]
